FAERS Safety Report 18969670 (Version 1)
Quarter: 2021Q1

REPORT INFORMATION
  Report Type: Report from Study
  Country: GB (occurrence: JP)
  Receive Date: 20210304
  Receipt Date: 20210304
  Transmission Date: 20210420
  Serious: Yes (Hospitalization, Other)
  Sender: FDA-Public Use
  Company Number: JP-ASTELLAS-2019US046732

PATIENT
  Age: 75 Year
  Sex: Female
  Weight: 45 kg

DRUGS (23)
  1. BIO?THREE [Concomitant]
     Active Substance: HERBALS
     Indication: PRODUCT USED FOR UNKNOWN INDICATION
     Dosage: UNKNOWN (DOSAGE IS UNCERTAIN.)
     Route: 065
     Dates: start: 20160125
  2. CALONAL [Concomitant]
     Active Substance: ACETAMINOPHEN
     Indication: PRODUCT USED FOR UNKNOWN INDICATION
     Dosage: UNKNOWN (DOSAGE IS UNCERTAIN.)
     Route: 048
     Dates: start: 20160812
  3. LOPENA [Concomitant]
     Indication: PRODUCT USED FOR UNKNOWN INDICATION
     Dosage: UNKNOWN (DOSAGE IS UNCERTAIN.)
     Route: 048
     Dates: start: 20170723
  4. SPIRONOLACTONE. [Concomitant]
     Active Substance: SPIRONOLACTONE
     Indication: PRODUCT USED FOR UNKNOWN INDICATION
     Dosage: UNKNOWN (DOSAGE IS UNCERTAIN.)
     Route: 065
     Dates: start: 20190410
  5. ERLOTINIB [Suspect]
     Active Substance: ERLOTINIB
     Route: 048
     Dates: start: 20170928, end: 20191008
  6. LASIX [Concomitant]
     Active Substance: FUROSEMIDE
     Indication: PRODUCT USED FOR UNKNOWN INDICATION
     Dosage: UNKNOWN (DOSAGE IS UNCERTAIN.)
     Route: 065
     Dates: start: 20181206
  7. FERROMIA [Concomitant]
     Active Substance: SODIUM FERROUS CITRATE
     Indication: PRODUCT USED FOR UNKNOWN INDICATION
     Dosage: UNKNOWN (DOSAGE IS UNCERTAIN.)
     Route: 065
     Dates: start: 20191009
  8. AZUNOL [SODIUM GUALENATE] [Concomitant]
     Active Substance: SODIUM GUALENATE
     Indication: PRODUCT USED FOR UNKNOWN INDICATION
     Dosage: UNKNOWN (DOSAGE IS UNCERTAIN.)
     Route: 050
     Dates: start: 20160130
  9. OLOPATADINE HYDROCHLORIDE. [Concomitant]
     Active Substance: OLOPATADINE HYDROCHLORIDE
     Indication: PRODUCT USED FOR UNKNOWN INDICATION
     Dosage: UNKNOWN (DOSAGE IS UNCERTAIN.)
     Route: 048
     Dates: start: 20160914
  10. BORRAZA?G [Concomitant]
     Active Substance: LIDOCAINE\TRIBENOSIDE
     Indication: PRODUCT USED FOR UNKNOWN INDICATION
     Dosage: UNK, UNKNOWN FREQ.
     Route: 065
     Dates: start: 20190510
  11. HEPARINOID [Concomitant]
     Active Substance: CHONDROITIN SULFATE (BOVINE)
     Indication: PRODUCT USED FOR UNKNOWN INDICATION
     Dosage: UNKNOWN (DOSAGE IS UNCERTAIN.)
     Route: 062
     Dates: start: 20160620
  12. HEMONASE [Concomitant]
     Indication: PRODUCT USED FOR UNKNOWN INDICATION
     Dosage: UNKNOWN (DOSAGE IS UNCERTAIN.)
     Route: 048
     Dates: start: 20180305
  13. ERLOTINIB [Suspect]
     Active Substance: ERLOTINIB
     Route: 048
     Dates: start: 20160921, end: 20170913
  14. MOHRUS L [Concomitant]
     Active Substance: KETOPROFEN
     Indication: PRODUCT USED FOR UNKNOWN INDICATION
     Dosage: UNKNWON (DOSAGE IS UNCERTAIN)
     Route: 062
     Dates: start: 201211
  15. AMLODIPINE [Concomitant]
     Active Substance: AMLODIPINE BESYLATE
     Indication: PRODUCT USED FOR UNKNOWN INDICATION
     Dosage: UNKNOWN (DOSAGE IS UNCERTAIN.)
     Route: 048
     Dates: start: 201305
  16. SELBEX [Concomitant]
     Active Substance: TEPRENONE
     Indication: PRODUCT USED FOR UNKNOWN INDICATION
     Dosage: UNKNOWN (DOSAGE IS UNCERTAIN.)
     Route: 065
     Dates: start: 20160615
  17. OLMETEC [Concomitant]
     Active Substance: OLMESARTAN MEDOXOMIL
     Indication: PRODUCT USED FOR UNKNOWN INDICATION
     Dosage: UNKNOWN (DOSAGE IS UNCERTAIN.)
     Route: 048
     Dates: start: 20171005
  18. EDIROL [Concomitant]
     Active Substance: ELDECALCITOL
     Indication: PRODUCT USED FOR UNKNOWN INDICATION
     Dosage: UNKNOWN (DOSAGE IS UNCERTAIN.)
     Route: 048
     Dates: start: 20190815
  19. ERLOTINIB [Suspect]
     Active Substance: ERLOTINIB
     Indication: LUNG ADENOCARCINOMA
     Route: 048
     Dates: start: 20160623, end: 20160831
  20. URSODEOXYCHOLIC ACID [Concomitant]
     Active Substance: URSODIOL
     Indication: PRODUCT USED FOR UNKNOWN INDICATION
     Dosage: UNKNOWN (DOSAGE IS UNCERTAIN.)
     Route: 048
     Dates: start: 20170913
  21. GENTACIN [Concomitant]
     Active Substance: GENTAMICIN SULFATE
     Indication: PRODUCT USED FOR UNKNOWN INDICATION
     Dosage: UNKNOWN (DOSAGE IS UNCERTAIN.)
     Route: 062
     Dates: start: 20181129
  22. AZUNOL [GUAIAZULENE] [Concomitant]
     Active Substance: GUAIAZULENE
     Indication: PRODUCT USED FOR UNKNOWN INDICATION
     Dosage: UNKNOWN (DOSAGE IS UNCERTAIN.)
     Route: 062
     Dates: start: 20180105
  23. BONALON [Concomitant]
     Active Substance: ALENDRONATE SODIUM
     Indication: PRODUCT USED FOR UNKNOWN INDICATION
     Dosage: UNKNOWN (DOSAGE IS UNCERTAIN.)
     Route: 048
     Dates: start: 20170507

REACTIONS (7)
  - Gastritis erosive [Recovered/Resolved]
  - Hypertension [Not Recovered/Not Resolved]
  - Rash maculo-papular [Recovering/Resolving]
  - Epidermolysis [Not Recovered/Not Resolved]
  - Dermatitis bullous [Not Recovered/Not Resolved]
  - Epidermolysis [Recovered/Resolved]
  - Alanine aminotransferase increased [Not Recovered/Not Resolved]

NARRATIVE: CASE EVENT DATE: 20170315
